FAERS Safety Report 4706502-2 (Version None)
Quarter: 2005Q3

REPORT INFORMATION
  Report Type: 
  Country: None (occurrence: None)
  Receive Date: 20050705
  Receipt Date: 20050630
  Transmission Date: 20060218
  Serious: Yes (Hospitalization)
  Sender: FDA-Public Use
  Company Number: RU-GLAXOSMITHKLINE-B0386537A

PATIENT
  Age: 28 Year
  Sex: Male
  Weight: 100 kg

DRUGS (2)
  1. AUGMENTIN '125' [Suspect]
     Indication: ACUTE SINUSITIS
     Route: 048
     Dates: start: 20050515, end: 20050518
  2. CLARITHROMYCIN [Concomitant]
     Indication: ACUTE SINUSITIS
     Dosage: 1000MG PER DAY
     Dates: start: 20050512, end: 20050515

REACTIONS (3)
  - ORAL CANDIDIASIS [None]
  - REFUSAL OF TREATMENT BY PATIENT [None]
  - TRACHEITIS [None]
